FAERS Safety Report 15004187 (Version 1)
Quarter: 2018Q2

REPORT INFORMATION
  Report Type: Spontaneous
  Country: US (occurrence: US)
  Receive Date: 20180524
  Receipt Date: 20180524
  Transmission Date: 20180711
  Serious: Yes (Death)
  Sender: FDA-Public Use
  Company Number: None

PATIENT
  Age: 91 Year
  Sex: Female

DRUGS (15)
  1. SERTRALINE [Concomitant]
     Active Substance: SERTRALINE HYDROCHLORIDE
  2. SILDENAFIL. [Suspect]
     Active Substance: SILDENAFIL
     Indication: PULMONARY ARTERIAL HYPERTENSION
     Route: 048
     Dates: start: 20180209
  3. PULMICORT 180MCG [Concomitant]
  4. QUETIAPINE 50MG [Concomitant]
     Active Substance: QUETIAPINE
  5. AMLODIPINE [Concomitant]
     Active Substance: AMLODIPINE BESYLATE
  6. BETHANECHOL 25MG [Concomitant]
     Active Substance: BETHANECHOL
  7. ALBUTEROL 0.083% NEB SOLUTION [Concomitant]
  8. ALPRAZOLAM 0.25MG [Concomitant]
     Active Substance: ALPRAZOLAM
  9. SPIRIVA [Concomitant]
     Active Substance: TIOTROPIUM BROMIDE MONOHYDRATE
  10. ATORVASTATIN 20MG [Concomitant]
     Active Substance: ATORVASTATIN
  11. SUCRALFATE 1GM [Concomitant]
  12. POTASSIUM CL 20MEQ [Concomitant]
  13. FAMOTIDINE 20MG [Concomitant]
     Active Substance: FAMOTIDINE
  14. FUROSEMID 40MG [Concomitant]
  15. URO-MAG 140MG [Concomitant]

REACTIONS (1)
  - Death [None]

NARRATIVE: CASE EVENT DATE: 20180519
